FAERS Safety Report 17824944 (Version 1)
Quarter: 2020Q2

REPORT INFORMATION
  Report Type: Spontaneous
  Country: US (occurrence: US)
  Receive Date: 20200526
  Receipt Date: 20200526
  Transmission Date: 20200714
  Serious: Yes (Death)
  Sender: FDA-Public Use
  Company Number: None

PATIENT
  Age: 76 Year
  Sex: Male
  Weight: 63.6 kg

DRUGS (11)
  1. LASIX [Concomitant]
     Active Substance: FUROSEMIDE
  2. REMDESIVIR. [Suspect]
     Active Substance: REMDESIVIR
     Indication: SARS-COV-2 TEST POSITIVE
     Route: 042
     Dates: start: 20200522, end: 20200525
  3. ENOXAPARIN [Concomitant]
     Active Substance: ENOXAPARIN
  4. BROVANA [Concomitant]
     Active Substance: ARFORMOTEROL TARTRATE
  5. PROTONIX [Concomitant]
     Active Substance: PANTOPRAZOLE SODIUM
  6. ATORVASTATIN [Concomitant]
     Active Substance: ATORVASTATIN
  7. ALBUTEROL. [Concomitant]
     Active Substance: ALBUTEROL
  8. ANORO ELLIPTA [Concomitant]
     Active Substance: UMECLIDINIUM BROMIDE\VILANTEROL TRIFENATATE
  9. PREDNISONE. [Concomitant]
     Active Substance: PREDNISONE
  10. INSULIN [Concomitant]
     Active Substance: INSULIN NOS
  11. METFORMIN [Concomitant]
     Active Substance: METFORMIN HYDROCHLORIDE

REACTIONS (6)
  - Interstitial lung disease [None]
  - Respiratory failure [None]
  - Tachycardia [None]
  - Dyspnoea [None]
  - Emphysema [None]
  - Cardiac arrest [None]

NARRATIVE: CASE EVENT DATE: 20200525
